FAERS Safety Report 12119397 (Version 1)
Quarter: 2016Q1

REPORT INFORMATION
  Report Type: Spontaneous
  Country: US (occurrence: US)
  Receive Date: 20160226
  Receipt Date: 20160226
  Transmission Date: 20160526
  Serious: No
  Sender: FDA-Public Use
  Company Number: US-BAYER-2016-038193

PATIENT
  Age: 93 Year
  Sex: Male
  Weight: 76.19 kg

DRUGS (1)
  1. MIRALAX [Suspect]
     Active Substance: POLYETHYLENE GLYCOL 3350
     Indication: CONSTIPATION
     Dosage: 1 DF, PRN
     Route: 061
     Dates: start: 201602

REACTIONS (2)
  - Diarrhoea [Recovered/Resolved]
  - Incorrect route of drug administration [None]

NARRATIVE: CASE EVENT DATE: 20160225
